FAERS Safety Report 4520384-3 (Version None)
Quarter: 2004Q4

REPORT INFORMATION
  Report Type: 
  Country: None (occurrence: None)
  Receive Date: 20041028
  Receipt Date: 20040706
  Transmission Date: 20050328
  Serious: Yes (Other)
  Sender: FDA-Public Use
  Company Number: HQWYE953008JUL04

PATIENT
  Age: 56 Year
  Sex: Female

DRUGS (2)
  1. PREMARIN [Suspect]
     Dates: start: 20000101, end: 20020321
  2. PREMPRO [Suspect]
     Dates: start: 19960101, end: 19990101

REACTIONS (1)
  - BREAST CANCER [None]
